FAERS Safety Report 6505255-5 (Version None)
Quarter: 2009Q4

REPORT INFORMATION
  Report Type: 
  Country: None (occurrence: None)
  Receive Date: 20091218
  Receipt Date: 20091216
  Transmission Date: 20100525
  Serious: Yes (Other)
  Sender: FDA-Public Use
  Company Number: PHEH2009US14371

PATIENT
  Sex: Female

DRUGS (1)
  1. ELIDEL [Suspect]

REACTIONS (1)
  - LYMPHOMA [None]
